FAERS Safety Report 19093384 (Version 1)
Quarter: 2021Q2

REPORT INFORMATION
  Report Type: Report from Study
  Country: US (occurrence: US)
  Receive Date: 20210405
  Receipt Date: 20210405
  Transmission Date: 20210717
  Serious: Yes (Other)
  Sender: FDA-Public Use
  Company Number: NVSC2021US070841

PATIENT
  Sex: Female

DRUGS (2)
  1. FEMARA [Suspect]
     Active Substance: LETROZOLE
     Indication: BREAST CANCER FEMALE
     Dosage: UNK UNK, QD (TAKE 1 TAB DAILY) (600)
     Route: 048
     Dates: start: 20171005
  2. KISQALI [Suspect]
     Active Substance: RIBOCICLIB
     Indication: BREAST CANCER FEMALE
     Dosage: 200 MG, QD (ON DAYS 1?21. TAKE) (600)
     Route: 048
     Dates: start: 20171005

REACTIONS (1)
  - Neutropenia [Unknown]
